FAERS Safety Report 6820945-2 (Version None)
Quarter: 2010Q3

REPORT INFORMATION
  Report Type: 
  Country: None (occurrence: None)
  Receive Date: 20100707
  Receipt Date: 20071018
  Transmission Date: 20110219
  Serious: No
  Sender: FDA-Public Use
  Company Number: US-PFIZER INC-2007078382

PATIENT
  Sex: Female
  Weight: 73.48 kg

DRUGS (3)
  1. ZOLOFT [Suspect]
     Indication: MAJOR DEPRESSION
     Dates: start: 20060101
  2. ZOLOFT [Suspect]
     Indication: FIBROMYALGIA
  3. LOTREL [Concomitant]

REACTIONS (2)
  - ABDOMINAL PAIN [None]
  - RASH GENERALISED [None]
